FAERS Safety Report 18808600 (Version 4)
Quarter: 2021Q3

REPORT INFORMATION
  Report Type: Spontaneous
  Country: US (occurrence: US)
  Receive Date: 20210129
  Receipt Date: 20210714
  Transmission Date: 20211014
  Serious: No
  Sender: FDA-Public Use
  Company Number: US-PFIZER INC-2020200133

PATIENT
  Age: 10 Year
  Sex: Male
  Weight: 40.82 kg

DRUGS (4)
  1. GENOTROPIN [Suspect]
     Active Substance: SOMATROPIN
     Indication: GROWTH HORMONE DEFICIENCY
     Dosage: 1.6 MG, DAILY (ALTERNATING SITES)
     Route: 058
     Dates: start: 202004, end: 202004
  2. GENOTROPIN [Suspect]
     Active Substance: SOMATROPIN
     Dosage: 1.6 MG, ALTERNATE DAY (ALTERNATES BETWEEN 1.6 MG AND 1.8 MG, EACH DAY)
     Route: 058
     Dates: start: 20200505
  3. GENOTROPIN [Suspect]
     Active Substance: SOMATROPIN
     Dosage: 1.8 MG, ALTERNATE DAY (ALTERNATES BETWEEN 1.6 MG AND 1.8 MG, EACH DAY)
     Route: 058
     Dates: start: 20200506
  4. GENOTROPIN [Suspect]
     Active Substance: SOMATROPIN
     Dosage: 1.8 MG

REACTIONS (6)
  - Drug dose omission by device [Unknown]
  - Device use issue [Unknown]
  - Device issue [Unknown]
  - Wrong technique in device usage process [Unknown]
  - Product preparation issue [Unknown]
  - Product prescribing error [Unknown]
